FAERS Safety Report 8249167-8 (Version None)
Quarter: 2012Q2

REPORT INFORMATION
  Report Type: 
  Country: None (occurrence: None)
  Receive Date: 20120402
  Receipt Date: 20120326
  Transmission Date: 20120825
  Serious: No
  Sender: FDA-Public Use
  Company Number: US-PFIZER INC-2012078390

PATIENT
  Age: 51 Year
  Sex: Female

DRUGS (3)
  1. NORGESTREL AND ETHINYL ESTRADIOL [Suspect]
     Indication: ENDOMETRIOSIS
  2. METFORMIN [Concomitant]
  3. NORGESTREL AND ETHINYL ESTRADIOL [Suspect]
     Indication: CONTRACEPTION
     Dosage: UNK

REACTIONS (1)
  - METRORRHAGIA [None]
